FAERS Safety Report 6882043-1 (Version None)
Quarter: 2010Q3

REPORT INFORMATION
  Report Type: 
  Country: None (occurrence: None)
  Receive Date: 20100729
  Receipt Date: 20100722
  Transmission Date: 20110219
  Serious: Yes (Hospitalization, Other)
  Sender: FDA-Public Use
  Company Number: FR-ASTRAZENECA-2010SE33948

PATIENT
  Sex: Female
  Weight: 106 kg

DRUGS (6)
  1. ARIMIDEX [Suspect]
     Indication: BREAST CANCER
     Route: 048
     Dates: end: 20100701
  2. CONTRAMAL [Concomitant]
  3. ACUPAN [Concomitant]
  4. FLUOXETINE [Concomitant]
  5. LEVOFLOXACIN [Concomitant]
  6. PRIMPERAN TAB [Concomitant]

REACTIONS (2)
  - BLINDNESS [None]
  - PITUITARY TUMOUR BENIGN [None]
